FAERS Safety Report 24338047 (Version 14)
Quarter: 2025Q4

REPORT INFORMATION
  Report Type: Report from Study
  Country: CA (occurrence: CA)
  Receive Date: 20240919
  Receipt Date: 20251224
  Transmission Date: 20260117
  Serious: Yes (Hospitalization, Other)
  Sender: RANBAXY
  Company Number: CA-SUN PHARMACEUTICAL INDUSTRIES LTD-2024R1-451403

PATIENT
  Sex: Female

DRUGS (3)
  1. TILDRAKIZUMAB [Suspect]
     Active Substance: TILDRAKIZUMAB
     Indication: Psoriasis
     Dosage: UNK (100 MG, WK 0,4,12)
     Route: 058
     Dates: start: 20240515
  2. TILDRAKIZUMAB [Suspect]
     Active Substance: TILDRAKIZUMAB
     Dosage: 100 MILLIGRAM, Q8WEEKS
     Route: 058
     Dates: start: 20241216, end: 20241230
  3. TILDRAKIZUMAB [Suspect]
     Active Substance: TILDRAKIZUMAB
     Dosage: 100 MILLIGRAM, Q6WEEKS
     Route: 058

REACTIONS (9)
  - Cellulitis [Unknown]
  - Pneumonia bacterial [Unknown]
  - Pneumonia [Unknown]
  - Off label use [Unknown]
  - Drug ineffective [Unknown]
  - Product dose omission issue [Unknown]
  - Inappropriate schedule of product administration [Unknown]
  - Dyspnoea [Unknown]
  - Disease progression [Unknown]

NARRATIVE: CASE EVENT DATE: 20241231
